FAERS Safety Report 9484853 (Version 2)
Quarter: 2013Q3

REPORT INFORMATION
  Report Type: Spontaneous
  Country: US (occurrence: US)
  Receive Date: 20130828
  Receipt Date: 20130828
  Transmission Date: 20140515
  Serious: Yes (Other)
  Sender: FDA-Public Use
  Company Number: US-ASTRAZENECA-2009SE26887

PATIENT
  Age: 88 Year
  Sex: Male
  Weight: 61.2 kg

DRUGS (10)
  1. CRESTOR [Suspect]
     Indication: BLOOD CHOLESTEROL DECREASED
     Route: 048
  2. CRESTOR [Suspect]
     Indication: BLOOD CHOLESTEROL DECREASED
     Route: 048
  3. LISINOPRIL [Suspect]
     Route: 048
  4. LISINOPRIL [Suspect]
     Route: 048
  5. METOPROLOL [Suspect]
     Route: 048
  6. METOPROLOL [Suspect]
     Route: 048
  7. TAMULOSIN [Concomitant]
     Route: 048
  8. FINASTERIDE [Concomitant]
     Route: 048
  9. LOW DOSE ASPIRIN [Concomitant]
     Dosage: DAILY
     Route: 048
  10. FAMOTIDINE [Concomitant]
     Route: 048

REACTIONS (3)
  - Prostate cancer [Unknown]
  - Constipation [Unknown]
  - Dizziness [Recovered/Resolved]
